FAERS Safety Report 9632799 (Version 1)
Quarter: 2013Q4

REPORT INFORMATION
  Report Type: Report from Study
  Country: US (occurrence: US)
  Receive Date: 20131018
  Receipt Date: 20131018
  Transmission Date: 20140711
  Serious: Yes (Other)
  Sender: FDA-Public Use
  Company Number: US-ABBVIE-13P-163-1155993-00

PATIENT
  Age: 48 Year
  Sex: Female

DRUGS (2)
  1. HUMIRA [Suspect]
     Indication: RHEUMATOID ARTHRITIS
     Route: 058
     Dates: start: 20130515, end: 20131007
  2. HUMIRA [Suspect]
     Dosage: EVERY WEEK FOR 30 DAYS
     Route: 058
     Dates: start: 201308, end: 201310

REACTIONS (3)
  - Swelling face [Recovering/Resolving]
  - Injection site swelling [Recovering/Resolving]
  - Injection site rash [Unknown]
